FAERS Safety Report 5145294-2 (Version None)
Quarter: 2006Q4

REPORT INFORMATION
  Report Type: 
  Country: None (occurrence: None)
  Receive Date: 20061101
  Receipt Date: 20061017
  Transmission Date: 20070319
  Serious: Yes (Other)
  Sender: FDA-Public Use
  Company Number: 15007

PATIENT
  Age: 72 Year
  Sex: Female

DRUGS (7)
  1. CARBOPLATIN [Suspect]
     Indication: LUNG NEOPLASM MALIGNANT
  2. PACLITAXEL [Suspect]
     Indication: LUNG NEOPLASM MALIGNANT
  3. 5-HT3 [Concomitant]
  4. METOCLOPRAMIDE [Concomitant]
  5. VINORELBINE [Suspect]
     Indication: GASTRIC CANCER
  6. GEMCITABINE [Suspect]
     Indication: LUNG NEOPLASM MALIGNANT
  7. IRESSA [Suspect]
     Indication: LUNG NEOPLASM MALIGNANT

REACTIONS (2)
  - ARTHROPATHY [None]
  - MUSCULOSKELETAL STIFFNESS [None]
